FAERS Safety Report 8519597-5 (Version None)
Quarter: 2012Q3

REPORT INFORMATION
  Report Type: 
  Country: None (occurrence: None)
  Receive Date: 20120718
  Receipt Date: 20120703
  Transmission Date: 20120928
  Serious: Yes (Hospitalization)
  Sender: FDA-Public Use
  Company Number: AT-BAXTER-2012BAX009784

PATIENT
  Sex: Female

DRUGS (7)
  1. OMEPRAZOLE [Concomitant]
     Route: 065
  2. AMLODIPINE BESYLATE [Concomitant]
     Route: 065
  3. METOPROLOL TARTRATE [Concomitant]
     Route: 065
  4. EXTRANEAL [Suspect]
     Route: 033
     Dates: start: 20120426
  5. PHYSIOSOL IN PLASTIC CONTAINER [Concomitant]
     Route: 033
  6. DOXAZOSIN MESYLATE [Concomitant]
     Route: 065
  7. LASIX [Concomitant]
     Route: 065

REACTIONS (2)
  - AGRANULOCYTOSIS [None]
  - PAIN [None]
